FAERS Safety Report 22691846 (Version 6)
Quarter: 2023Q4

REPORT INFORMATION
  Report Type: Spontaneous
  Country: US (occurrence: US)
  Receive Date: 20230711
  Receipt Date: 20231113
  Transmission Date: 20240109
  Serious: Yes (Other)
  Sender: FDA-Public Use
  Company Number: US-PFIZER INC-PV202300119014

PATIENT
  Age: 71 Year
  Sex: Female

DRUGS (1)
  1. IBRANCE [Suspect]
     Active Substance: PALBOCICLIB
     Dosage: 100 MG, DAILY (TAKE 1 TAB DAILY BY MOUTH)
     Route: 048

REACTIONS (11)
  - Gait disturbance [Unknown]
  - Spinal fracture [Unknown]
  - Decreased appetite [Unknown]
  - Anxiety [Unknown]
  - Malaise [Unknown]
  - Depressed mood [Unknown]
  - Visual impairment [Unknown]
  - Nervousness [Unknown]
  - Psychiatric symptom [Unknown]
  - Crying [Unknown]
  - Back pain [Unknown]
